FAERS Safety Report 21400934 (Version 1)
Quarter: 2022Q4

REPORT INFORMATION
  Report Type: Spontaneous
  Country: DE (occurrence: DE)
  Receive Date: 20221003
  Receipt Date: 20221003
  Transmission Date: 20230112
  Serious: Yes (Other)
  Sender: FDA-Public Use
  Company Number: DE-ALKEM LABORATORIES LIMITED-DE-ALKEM-2022-10547

PATIENT
  Sex: Male

DRUGS (8)
  1. FINGOLIMOD [Suspect]
     Active Substance: FINGOLIMOD
     Indication: Multiple sclerosis
     Dosage: 0.5 MILLIGRAM (CAPSULE, HARD)
     Route: 048
  2. CHOLECALCIFEROL [Concomitant]
     Active Substance: CHOLECALCIFEROL
     Indication: Vitamin D deficiency
     Dosage: 20 INTERNATIONAL UNIT (EVERY 1 WEEK)
     Route: 065
     Dates: start: 20140314, end: 20190725
  3. CHOLECALCIFEROL [Concomitant]
     Active Substance: CHOLECALCIFEROL
     Dosage: 20 INTERNATIONAL UNIT (EVERY 1 MONTH)
     Route: 065
     Dates: start: 20190725
  4. DIMETHICONE [Concomitant]
     Active Substance: DIMETHICONE
     Indication: Proctitis ulcerative
     Dosage: UNK
     Route: 065
     Dates: start: 20160315
  5. MESALAMINE [Concomitant]
     Active Substance: MESALAMINE
     Indication: Proctitis ulcerative
     Dosage: 3 GRAM, QD
     Route: 065
     Dates: start: 20150624
  6. PANTOPRAZOLE SODIUM [Concomitant]
     Active Substance: PANTOPRAZOLE SODIUM
     Indication: Prophylaxis against gastrointestinal ulcer
     Dosage: UNK
     Route: 065
     Dates: start: 20170815
  7. PREDNISOLONE [Concomitant]
     Active Substance: PREDNISOLONE
     Indication: Colitis ulcerative
     Dosage: UNK
     Route: 065
     Dates: start: 20170815
  8. SIMETHICONE (DIMETHICONE) [Concomitant]
     Active Substance: DIMETHICONE
     Indication: Colitis ulcerative
     Dosage: UNK
     Route: 065
     Dates: start: 20170815

REACTIONS (5)
  - Heart rate increased [Unknown]
  - Heart rate increased [Recovered/Resolved]
  - Infection [Not Recovered/Not Resolved]
  - Back pain [Unknown]
  - Spondylitis [Unknown]

NARRATIVE: CASE EVENT DATE: 20180707
